FAERS Safety Report 20157507 (Version 1)
Quarter: 2021Q4

REPORT INFORMATION
  Report Type: Spontaneous
  Country: US (occurrence: US)
  Receive Date: 20211207
  Receipt Date: 20211207
  Transmission Date: 20220303
  Serious: No
  Sender: FDA-Public Use
  Company Number: US-IBSA PHARMA INC.-2021IBS000120

PATIENT

DRUGS (3)
  1. TIROSINT [Suspect]
     Active Substance: LEVOTHYROXINE SODIUM
     Indication: Hypothyroidism
     Dosage: 75 ?G, UNK
     Route: 048
  2. TIROSINT [Suspect]
     Active Substance: LEVOTHYROXINE SODIUM
     Dosage: 88 ?G, UNK
     Route: 048
     Dates: start: 202105, end: 20210611
  3. TIROSINT [Suspect]
     Active Substance: LEVOTHYROXINE SODIUM
     Dosage: 75 ?G, FOR 5 DAYS AND 88 ?G FOR 2 DAYS
     Route: 048

REACTIONS (4)
  - Pruritus [Unknown]
  - Hyperthyroidism [Unknown]
  - Hypothyroidism [Not Recovered/Not Resolved]
  - Expired product administered [Unknown]

NARRATIVE: CASE EVENT DATE: 20210101
